FAERS Safety Report 10699868 (Version 1)
Quarter: 2015Q1

REPORT INFORMATION
  Report Type: Report from Study
  Country: ES (occurrence: ES)
  Receive Date: 20150109
  Receipt Date: 20150109
  Transmission Date: 20150721
  Serious: Yes (Hospitalization)
  Sender: FDA-Public Use
  Company Number: PHHO2014ES017327

PATIENT
  Age: 61 Year
  Sex: Male
  Weight: 64 kg

DRUGS (8)
  1. TARDYFERON [Concomitant]
     Active Substance: FERROUS SULFATE\FOLIC ACID
     Indication: ANAEMIA
     Dosage: 80 MG, QD
     Route: 065
     Dates: start: 20141215, end: 20141231
  2. CERTICAN [Suspect]
     Active Substance: EVEROLIMUS
     Indication: LIVER TRANSPLANT
     Dosage: 0.5 MG, Q12H
     Route: 065
     Dates: start: 20141227, end: 20141231
  3. ADVAGRAF [Concomitant]
     Active Substance: TACROLIMUS
     Indication: LIVER TRANSPLANT
     Dosage: 9 MG, QD
     Route: 065
     Dates: start: 20141219
  4. INSULIN [Concomitant]
     Active Substance: INSULIN NOS
     Indication: DIABETES MELLITUS
     Dosage: UNK
     Route: 065
     Dates: end: 20141231
  5. DEFLAZACORT [Concomitant]
     Active Substance: DEFLAZACORT
     Dosage: 30 MG, QD
     Route: 065
     Dates: start: 20141208, end: 20141231
  6. FUROSEMIDE. [Concomitant]
     Active Substance: FUROSEMIDE
     Indication: DIURETIC THERAPY
     Dosage: 40 MG, Q48H
     Route: 065
     Dates: end: 20141231
  7. COTRIMOXAZOL [Concomitant]
     Indication: INFECTION PROPHYLAXIS
     Dosage: 800/160MG 48H
     Route: 065
     Dates: start: 20141210, end: 20141231
  8. MAGNESIOBOI [Concomitant]
     Indication: TREMOR
     Dosage: 50 MG, Q8H
     Route: 065
     Dates: start: 20141226, end: 20141231

REACTIONS (1)
  - Dyskinesia [Recovered/Resolved]

NARRATIVE: CASE EVENT DATE: 20141231
